APPROVED DRUG PRODUCT: BIVALIRUDIN
Active Ingredient: BIVALIRUDIN
Strength: 250MG/VIAL
Dosage Form/Route: INJECTABLE;INTRAVENOUS
Application: A210031 | Product #001 | TE Code: AP
Applicant: HAINAN SHUANGCHENG PHARMACEUTICALS CO LTD
Approved: Oct 23, 2019 | RLD: No | RS: No | Type: RX